FAERS Safety Report 21860540 (Version 2)
Quarter: 2023Q2

REPORT INFORMATION
  Report Type: Report from Study
  Country: US (occurrence: US)
  Receive Date: 20230113
  Receipt Date: 20230508
  Transmission Date: 20230722
  Serious: Yes (Other)
  Sender: FDA-Public Use
  Company Number: US-ABBVIE-4265716

PATIENT
  Age: 62 Year
  Sex: Male
  Weight: 75 kg

DRUGS (5)
  1. RINVOQ [Suspect]
     Active Substance: UPADACITINIB
     Indication: Rheumatoid arthritis
     Dosage: FORM STRENGTH: 15 MILLIGRAM
     Route: 048
     Dates: start: 20210702, end: 20230306
  2. FLOMAX [Concomitant]
     Active Substance: TAMSULOSIN HYDROCHLORIDE
     Indication: Product used for unknown indication
     Route: 065
  3. PLAQUENIL [Concomitant]
     Active Substance: HYDROXYCHLOROQUINE SULFATE
     Indication: Inflammation
     Route: 065
  4. PROSCAR [Concomitant]
     Active Substance: FINASTERIDE
     Indication: Product used for unknown indication
     Route: 065
  5. LEFLUNOMIDE [Suspect]
     Active Substance: LEFLUNOMIDE
     Indication: Product used for unknown indication
     Route: 065

REACTIONS (9)
  - Deafness [Recovered/Resolved]
  - Nasopharyngitis [Recovering/Resolving]
  - Aspartate aminotransferase increased [Recovering/Resolving]
  - Unevaluable event [Unknown]
  - Sinus congestion [Recovered/Resolved]
  - Influenza [Recovering/Resolving]
  - Alanine aminotransferase increased [Recovered/Resolved]
  - Eustachian tube obstruction [Recovered/Resolved]
  - Ear pain [Recovered/Resolved]

NARRATIVE: CASE EVENT DATE: 20221201
